FAERS Safety Report 5646393-9 (Version None)
Quarter: 2008Q1

REPORT INFORMATION
  Report Type: 
  Country: None (occurrence: None)
  Receive Date: 20080303
  Receipt Date: 20080131
  Transmission Date: 20080703
  Serious: No
  Sender: FDA-Public Use
  Company Number: US-BAYER-200812920NA

PATIENT

DRUGS (1)
  1. AVELOX [Suspect]
     Indication: APPENDICITIS
     Route: 042

REACTIONS (1)
  - NAUSEA [None]
